FAERS Safety Report 6841542-9 (Version None)
Quarter: 2010Q3

REPORT INFORMATION
  Report Type: 
  Country: None (occurrence: None)
  Receive Date: 20100714
  Receipt Date: 20070710
  Transmission Date: 20110219
  Serious: No
  Sender: FDA-Public Use
  Company Number: US-PFIZER INC-2007057950

PATIENT
  Sex: Female
  Weight: 77.3 kg

DRUGS (7)
  1. CHANTIX [Suspect]
     Indication: SMOKING CESSATION THERAPY
  2. CRESTOR [Concomitant]
  3. HYDROCHLOROTHIAZIDE [Concomitant]
  4. LISINOPRIL [Concomitant]
  5. PLAVIX [Concomitant]
  6. BETAXOLOL [Concomitant]
  7. PREDNISONE TAB [Concomitant]

REACTIONS (3)
  - MALAISE [None]
  - MEDICATION ERROR [None]
  - VOMITING [None]
